FAERS Safety Report 5075616-2 (Version None)
Quarter: 2006Q3

REPORT INFORMATION
  Report Type: 
  Country: None (occurrence: None)
  Receive Date: 20060809
  Receipt Date: 20060801
  Transmission Date: 20061208
  Serious: Yes (Other)
  Sender: FDA-Public Use
  Company Number: 2006UW15626

PATIENT
  Sex: Female

DRUGS (1)
  1. DIPRIVAN [Suspect]
     Indication: CAESAREAN SECTION
     Route: 042
     Dates: start: 20060801, end: 20060801

REACTIONS (3)
  - CYANOSIS [None]
  - HYPOTENSION [None]
  - SHOCK [None]
